FAERS Safety Report 9719976 (Version 4)
Quarter: 2013Q4

REPORT INFORMATION
  Report Type: Spontaneous
  Country: US (occurrence: US)
  Receive Date: 20131128
  Receipt Date: 20131223
  Transmission Date: 20140711
  Serious: Yes (Other)
  Sender: FDA-Public Use
  Company Number: US-SA-2013SA122049

PATIENT
  Age: 13 Year
  Sex: Male

DRUGS (1)
  1. FABRAZYME [Suspect]
     Indication: FABRY^S DISEASE
     Route: 042
     Dates: start: 20130815

REACTIONS (4)
  - Lip swelling [Unknown]
  - Throat tightness [Unknown]
  - Headache [Unknown]
  - Paraesthesia [Unknown]
